FAERS Safety Report 5089072-1 (Version None)
Quarter: 2006Q3

REPORT INFORMATION
  Report Type: 
  Country: None (occurrence: None)
  Receive Date: 20060822
  Receipt Date: 20060801
  Transmission Date: 20061208
  Serious: Yes (Hospitalization)
  Sender: FDA-Public Use
  Company Number: FR200608000535

PATIENT
  Age: 82 Year
  Sex: Female

DRUGS (5)
  1. FORTEO [Suspect]
     Indication: OSTEOPOROSIS
     Dosage: 20 UG, DAILY (1/D), SUBCUTANEOUS
     Route: 058
     Dates: start: 20050314
  2. FORTEO PEN (FORTEO PEN) [Concomitant]
  3. NICARDIPINE HYDROCHLORIDE [Concomitant]
  4. CACIT (CALCIUM CARBONATE, CITRIC ACID) [Concomitant]
  5. DEDROGYL (CALCIFEDIOL) [Concomitant]

REACTIONS (2)
  - FALL [None]
  - FEMUR FRACTURE [None]
